FAERS Safety Report 9298334 (Version 3)
Quarter: 2013Q3

REPORT INFORMATION
  Report Type: Report from Study
  Country: US (occurrence: US)
  Receive Date: 20130520
  Receipt Date: 20130823
  Transmission Date: 20140515
  Serious: Yes (Hospitalization)
  Sender: FDA-Public Use
  Company Number: PHEH2013US010868

PATIENT
  Age: 56 Year
  Sex: Female

DRUGS (1)
  1. MYFORTIC [Suspect]
     Indication: RENAL TRANSPLANT
     Dosage: 720 MG, BID
     Route: 048

REACTIONS (12)
  - Skin ulcer [Recovering/Resolving]
  - Wound [Not Recovered/Not Resolved]
  - Cellulitis [Recovering/Resolving]
  - Erythema [Recovering/Resolving]
  - Local swelling [Recovering/Resolving]
  - Pain in extremity [Recovering/Resolving]
  - Malaise [Recovering/Resolving]
  - Food poisoning [Recovering/Resolving]
  - Vomiting [Recovering/Resolving]
  - Aphagia [Recovering/Resolving]
  - Mobility decreased [Recovering/Resolving]
  - Confusional state [Recovering/Resolving]
